FAERS Safety Report 16631281 (Version 2)
Quarter: 2019Q3

REPORT INFORMATION
  Report Type: Spontaneous
  Country: GR (occurrence: GR)
  Receive Date: 20190725
  Receipt Date: 20190730
  Transmission Date: 20191004
  Serious: Yes (Death, Other)
  Sender: FDA-Public Use
  Company Number: GR-JNJFOC-20190727016

PATIENT
  Age: 70 Year
  Sex: Male

DRUGS (4)
  1. XANAX [Concomitant]
     Active Substance: ALPRAZOLAM
     Indication: INSOMNIA
     Route: 065
  2. TOPAMAC [Suspect]
     Active Substance: TOPIRAMATE
     Route: 048
  3. LONARID-N [Concomitant]
     Active Substance: ACETAMINOPHEN\CAFFEINE\CODEINE PHOSPHATE
     Indication: ARTHROPATHY
     Route: 065
     Dates: start: 201601
  4. TOPAMAC [Suspect]
     Active Substance: TOPIRAMATE
     Indication: ESSENTIAL TREMOR
     Route: 048

REACTIONS (6)
  - Influenza [Fatal]
  - Product use in unapproved indication [Unknown]
  - Respiratory failure [Unknown]
  - Prostatic specific antigen increased [Unknown]
  - Cachexia [Unknown]
  - Off label use [Unknown]

NARRATIVE: CASE EVENT DATE: 2015
